FAERS Safety Report 7564931-6 (Version None)
Quarter: 2011Q2

REPORT INFORMATION
  Report Type: 
  Country: None (occurrence: None)
  Receive Date: 20110622
  Receipt Date: 20110325
  Transmission Date: 20111010
  Serious: Yes (Death, Hospitalization)
  Sender: FDA-Public Use
  Company Number: US-MYLANLABS-2011S1003736

PATIENT
  Age: 51 Year
  Sex: Male

DRUGS (3)
  1. METAMUCIL-2 [Concomitant]
  2. CLOZAPINE [Suspect]
     Indication: SCHIZOPHRENIA, PARANOID TYPE
     Route: 048
     Dates: end: 20110216
  3. CLONAZEPAM [Concomitant]

REACTIONS (1)
  - LYMPHOMA [None]
